FAERS Safety Report 24969568 (Version 1)
Quarter: 2025Q1

REPORT INFORMATION
  Report Type: Spontaneous
  Country: US (occurrence: None)
  Receive Date: 20250213
  Receipt Date: 20250213
  Transmission Date: 20250408
  Serious: Yes (Hospitalization)
  Sender: FDA-CTU
  Company Number: None

PATIENT
  Age: 69 Year
  Sex: Male

DRUGS (9)
  1. DUPIXENT [Suspect]
     Active Substance: DUPILUMAB
  2. GABAPENTIN 400MG CAPSULES [Concomitant]
  3. IBUPROFEN 400MG TABLETS [Concomitant]
  4. LEVOCETIRIZINE 5MG TABLETS [Concomitant]
  5. LOSARTAN [Concomitant]
     Active Substance: LOSARTAN
  6. METFORMIN HYDROCHLORIDE [Concomitant]
     Active Substance: METFORMIN HYDROCHLORIDE
  7. TIZANIDINE HYDROCHLORIDE [Concomitant]
     Active Substance: TIZANIDINE HYDROCHLORIDE
  8. TRELECY ELLIPTA 200-62.5MCG INH 30P [Concomitant]
  9. VENTOLIN HFA INH W/DOS CTR 200PUFFS [Concomitant]

REACTIONS (1)
  - Movement disorder [None]

NARRATIVE: CASE EVENT DATE: 20250201
